FAERS Safety Report 5961278-6 (Version None)
Quarter: 2008Q4

REPORT INFORMATION
  Report Type: 
  Country: None (occurrence: None)
  Receive Date: 20081121
  Receipt Date: 20081107
  Transmission Date: 20090506
  Serious: Yes (Hospitalization)
  Sender: FDA-Public Use
  Company Number: JP-AMGEN-US277136

PATIENT
  Sex: Female
  Weight: 46 kg

DRUGS (13)
  1. ENBREL [Suspect]
     Indication: RHEUMATOID ARTHRITIS
     Route: 058
     Dates: start: 20050602
  2. BREDININ [Concomitant]
  3. LOXONIN [Concomitant]
  4. MARZULENE S [Concomitant]
  5. PREDNISOLONE [Concomitant]
     Dosage: UNKNOWN
     Route: 048
     Dates: start: 19901101
  6. LANSOPRAZOLE [Concomitant]
  7. ASPIRIN [Concomitant]
  8. MAGNESIUM OXIDE [Concomitant]
  9. ALESION [Concomitant]
  10. ORCL [Concomitant]
     Indication: RHEUMATOID ARTHRITIS
     Dosage: UNKNOWN
     Route: 065
     Dates: start: 20040408
  11. BLOPRESS [Concomitant]
  12. CIBENZOLINE [Concomitant]
  13. HERBAL SUPPLEMENT [Concomitant]

REACTIONS (2)
  - CONDITION AGGRAVATED [None]
  - HEPATITIS C [None]
